FAERS Safety Report 18443263 (Version 1)
Quarter: 2020Q4

REPORT INFORMATION
  Report Type: Spontaneous
  Country: US (occurrence: US)
  Receive Date: 20201029
  Receipt Date: 20201029
  Transmission Date: 20210114
  Serious: No
  Sender: FDA-Public Use
  Company Number: US-ALLERGAN-2032615US

PATIENT
  Age: 72 Year
  Sex: Female

DRUGS (1)
  1. INFED [Suspect]
     Active Substance: IRON DEXTRAN
     Indication: IRON DEFICIENCY ANAEMIA
     Dosage: 100MG IN 100ML NORMAL SALINE, GIVEN AT 100ML
     Route: 042
     Dates: start: 20200825, end: 20200825

REACTIONS (6)
  - Headache [Unknown]
  - Back pain [Unknown]
  - Nausea [Unknown]
  - Loss of control of legs [Unknown]
  - Feeling abnormal [Unknown]
  - Chills [Unknown]

NARRATIVE: CASE EVENT DATE: 20200825
